FAERS Safety Report 7462821-0 (Version None)
Quarter: 2011Q2

REPORT INFORMATION
  Report Type: 
  Country: None (occurrence: None)
  Receive Date: 20110506
  Receipt Date: 20100622
  Transmission Date: 20111010
  Serious: No
  Sender: FDA-Public Use
  Company Number: US-BAYER-201027702NA

PATIENT
  Sex: Female

DRUGS (1)
  1. YASMIN [Suspect]

REACTIONS (1)
  - DIARRHOEA [None]
